FAERS Safety Report 20734289 (Version 1)
Quarter: 2022Q2

REPORT INFORMATION
  Report Type: Spontaneous
  Country: US (occurrence: None)
  Receive Date: 20220420
  Receipt Date: 20220420
  Transmission Date: 20220720
  Serious: Yes (Hospitalization)
  Sender: FDA-Public Use
  Company Number: None

PATIENT
  Age: 43 Year
  Sex: Male
  Weight: 109.77 kg

DRUGS (3)
  1. WELIREG [Suspect]
     Active Substance: BELZUTIFAN
     Indication: Renal cancer
     Dosage: FREQUENCY : DAILY;?
     Route: 048
  2. FINASTERIDE [Concomitant]
  3. MENTS MULTIVITAMIN [Concomitant]

REACTIONS (2)
  - Pain [None]
  - Sepsis [None]

NARRATIVE: CASE EVENT DATE: 20220415
